FAERS Safety Report 15664450 (Version 7)
Quarter: 2019Q3

REPORT INFORMATION
  Report Type: Spontaneous
  Country: BR (occurrence: BR)
  Receive Date: 20181128
  Receipt Date: 20190905
  Transmission Date: 20191004
  Serious: Yes (Other)
  Sender: FDA-Public Use
  Company Number: BR-GLAXOSMITHKLINE-BR2018GSK213762

PATIENT
  Age: 76 Year
  Sex: Female
  Weight: 85 kg

DRUGS (1)
  1. NUCALA [Suspect]
     Active Substance: MEPOLIZUMAB
     Indication: ASTHMA
     Dosage: 100 MG, UNK
     Dates: start: 20181113

REACTIONS (20)
  - Sinus congestion [Unknown]
  - Head injury [Unknown]
  - Pain [Unknown]
  - Erythema [Unknown]
  - Therapeutic product effect incomplete [Unknown]
  - Lung infection [Unknown]
  - Increased viscosity of bronchial secretion [Unknown]
  - Diarrhoea [Unknown]
  - Asthma [Unknown]
  - Product availability issue [Unknown]
  - Dyspnoea [Unknown]
  - Varicose vein [Unknown]
  - Fear [Unknown]
  - Cushing^s syndrome [Unknown]
  - Bronchospasm [Recovering/Resolving]
  - Vomiting [Unknown]
  - Incorrect product administration duration [Unknown]
  - Fall [Unknown]
  - Back injury [Unknown]
  - Tendon disorder [Unknown]

NARRATIVE: CASE EVENT DATE: 201811
